FAERS Safety Report 11840433 (Version 1)
Quarter: 2015Q4

REPORT INFORMATION
  Report Type: Spontaneous
  Country: US (occurrence: None)
  Receive Date: 20151215
  Receipt Date: 20151215
  Transmission Date: 20160305
  Serious: Yes (Other)
  Sender: FDA-Public Use
  Company Number: None

PATIENT
  Age: 43 Year
  Sex: Female
  Weight: 66.68 kg

DRUGS (16)
  1. DEXTROAMPHETAMINE. [Concomitant]
     Active Substance: DEXTROAMPHETAMINE
  2. GABAPENTIN. [Concomitant]
     Active Substance: GABAPENTIN
  3. DHEA [Concomitant]
     Active Substance: PRASTERONE
  4. OIL OF OREGANO [Concomitant]
  5. MAGNESIUM CITRATE. [Concomitant]
     Active Substance: MAGNESIUM CITRATE
  6. GINKGO BILOBA [Concomitant]
     Active Substance: GINKGO
  7. RETIN-A [Concomitant]
     Active Substance: TRETINOIN
  8. AMITIZA [Concomitant]
     Active Substance: LUBIPROSTONE
  9. VITAMIN D [Concomitant]
     Active Substance: CHOLECALCIFEROL
  10. LITHIUM CARBONATE. [Concomitant]
     Active Substance: LITHIUM CARBONATE
  11. SPIRONOLACTONE. [Concomitant]
     Active Substance: SPIRONOLACTONE
  12. BALZIVA [Concomitant]
     Active Substance: ETHINYL ESTRADIOL\NORETHINDRONE
  13. ABILIFY MAINTENA [Suspect]
     Active Substance: ARIPIPRAZOLE
     Indication: BIPOLAR I DISORDER
     Route: 030
     Dates: start: 20151210
  14. C-TESTOSTERONE 1% CREAM [Concomitant]
  15. DHA [Concomitant]
     Active Substance: DIETARY SUPPLEMENT
  16. CARBAMAZAPINE [Concomitant]
     Active Substance: CARBAMAZEPINE

REACTIONS (3)
  - Rash [None]
  - Injection site rash [None]
  - No therapeutic response [None]

NARRATIVE: CASE EVENT DATE: 20151212
